FAERS Safety Report 9024728 (Version 2)
Quarter: 2013Q1

REPORT INFORMATION
  Report Type: Spontaneous
  Country: US (occurrence: US)
  Receive Date: 20130121
  Receipt Date: 20130205
  Transmission Date: 20140127
  Serious: Yes (Hospitalization)
  Sender: FDA-Public Use
  Company Number: US-BIOGENIDEC-2013BI004013

PATIENT
  Age: 60 Year
  Sex: Female

DRUGS (3)
  1. AVONEX [Suspect]
     Indication: MULTIPLE SCLEROSIS
     Route: 030
     Dates: start: 20120620
  2. NEURONTIN [Concomitant]
     Indication: PAIN
  3. AMPYRA [Concomitant]
     Indication: GAIT DISTURBANCE

REACTIONS (6)
  - Fall [Recovered/Resolved]
  - Concussion [Recovered/Resolved]
  - Upper limb fracture [Not Recovered/Not Resolved]
  - Memory impairment [Not Recovered/Not Resolved]
  - Muscular weakness [Not Recovered/Not Resolved]
  - Muscle spasms [Recovered/Resolved]
